FAERS Safety Report 10855814 (Version 1)
Quarter: 2015Q1

REPORT INFORMATION
  Report Type: Spontaneous
  Country: US (occurrence: None)
  Receive Date: 20150218
  Receipt Date: 20150218
  Transmission Date: 20150721
  Serious: Yes (Other)
  Sender: FDA-Public Use
  Company Number: None

PATIENT
  Age: 65 Year
  Sex: Female
  Weight: 52.16 kg

DRUGS (18)
  1. ATROVASTATIN [Concomitant]
     Active Substance: ATORVASTATIN CALCIUM
  2. KRILL OIL [Concomitant]
     Active Substance: DIETARY SUPPLEMENT
  3. B^S [Concomitant]
  4. ALBUTEROL INHALER [Concomitant]
     Active Substance: ALBUTEROL
  5. CALCIUM [Concomitant]
     Active Substance: CALCIUM
  6. METOPROLOL [Concomitant]
     Active Substance: METOPROLOL
  7. FENOFIBRATE. [Concomitant]
     Active Substance: FENOFIBRATE
  8. SYMBICORT [Concomitant]
     Active Substance: BUDESONIDE\FORMOTEROL FUMARATE DIHYDRATE
  9. VITAMIN D [Concomitant]
     Active Substance: CHOLECALCIFEROL
  10. VITAMIN E [Concomitant]
     Active Substance: .ALPHA.-TOCOPHEROL
  11. MINERAL BLEND [Concomitant]
  12. LEVOTHYROXIN [Concomitant]
     Active Substance: LEVOTHYROXINE
  13. FISH OIL [Concomitant]
     Active Substance: FISH OIL
  14. VIT B [Concomitant]
     Active Substance: VITAMINS
  15. COQ10 [Concomitant]
     Active Substance: UBIDECARENONE
  16. RECLAST [Suspect]
     Active Substance: ZOLEDRONIC ACID
     Indication: OSTEOPOROSIS POSTMENOPAUSAL
     Dosage: INTO A VEIN
     Route: 042
  17. METFORMIN [Concomitant]
     Active Substance: METFORMIN HYDROCHLORIDE
  18. SPIRIVA [Concomitant]
     Active Substance: TIOTROPIUM BROMIDE MONOHYDRATE

REACTIONS (1)
  - Breast calcifications [None]

NARRATIVE: CASE EVENT DATE: 20141201
